FAERS Safety Report 17817559 (Version 1)
Quarter: 2020Q2

REPORT INFORMATION
  Report Type: Spontaneous
  Country: CA (occurrence: CA)
  Receive Date: 20200522
  Receipt Date: 20200522
  Transmission Date: 20200714
  Serious: Yes (Other)
  Sender: FDA-Public Use
  Company Number: CA-TEVA-2020-CA-1237973

PATIENT
  Age: 67 Year

DRUGS (2)
  1. AZATHIOPRINE SODIUM. [Suspect]
     Active Substance: AZATHIOPRINE SODIUM
     Indication: PRODUCT USED FOR UNKNOWN INDICATION
     Route: 065
  2. METHOTREXATE. [Suspect]
     Active Substance: METHOTREXATE
     Indication: CROHN^S DISEASE
     Route: 065

REACTIONS (5)
  - Pancytopenia [Unknown]
  - Drug intolerance [Unknown]
  - Alanine aminotransferase increased [Unknown]
  - Off label use [Unknown]
  - Product use in unapproved indication [Unknown]
